FAERS Safety Report 9464182 (Version 1)
Quarter: 2013Q3

REPORT INFORMATION
  Report Type: Spontaneous
  Country: GR (occurrence: GR)
  Receive Date: 20130819
  Receipt Date: 20130819
  Transmission Date: 20140515
  Serious: Yes (Hospitalization)
  Sender: FDA-Public Use
  Company Number: GR-MYLANLABS-2013S1017686

PATIENT
  Age: 76 Year
  Sex: Female

DRUGS (2)
  1. ISONIAZID [Suspect]
     Indication: LATENT TUBERCULOSIS
     Route: 065
  2. GLIMEPIRIDE [Interacting]
     Indication: TYPE 2 DIABETES MELLITUS
     Dosage: 4MG
     Route: 065

REACTIONS (3)
  - Hyperinsulinaemia [Recovered/Resolved]
  - Hypoglycaemia [Recovered/Resolved]
  - Drug interaction [Recovered/Resolved]
